FAERS Safety Report 5332294-2 (Version None)
Quarter: 2007Q2

REPORT INFORMATION
  Report Type: 
  Country: None (occurrence: None)
  Receive Date: 20070523
  Receipt Date: 20070514
  Transmission Date: 20071010
  Serious: Yes (Death)
  Sender: FDA-Public Use
  Company Number: ES-MERCK-0703ESP00029

PATIENT
  Age: 69 Year
  Sex: Female
  Weight: 75 kg

DRUGS (10)
  1. CANCIDAS [Suspect]
     Indication: PERITONITIS
     Route: 041
     Dates: start: 20070307, end: 20070307
  2. CANCIDAS [Suspect]
     Route: 041
     Dates: start: 20070308, end: 20070312
  3. CANCIDAS [Suspect]
     Indication: PANCREATITIS HAEMORRHAGIC
     Route: 041
     Dates: start: 20070307, end: 20070307
  4. CANCIDAS [Suspect]
     Route: 041
     Dates: start: 20070308, end: 20070312
  5. MEROPENEM [Suspect]
     Indication: PANCREATITIS
     Route: 042
     Dates: start: 20070307, end: 20070314
  6. MEROPENEM [Suspect]
     Indication: SURGERY
     Route: 042
     Dates: start: 20070307, end: 20070314
  7. LINEZOLID [Suspect]
     Indication: MICROBIOLOGY TEST
     Route: 042
     Dates: start: 20070309, end: 20070316
  8. CILASTATIN SODIUM AND IMIPENEM [Concomitant]
     Indication: EVIDENCE BASED TREATMENT
     Route: 042
     Dates: start: 20070201, end: 20070223
  9. CILASTATIN SODIUM AND IMIPENEM [Concomitant]
     Indication: PANCREATITIS
     Route: 042
     Dates: start: 20070201, end: 20070223
  10. HEPARIN [Suspect]
     Indication: HAEMODIALYSIS
     Route: 051
     Dates: start: 20070307, end: 20070321

REACTIONS (2)
  - SEPTIC SHOCK [None]
  - THROMBOCYTOPENIA [None]
